FAERS Safety Report 24072712 (Version 1)
Quarter: 2024Q3

REPORT INFORMATION
  Report Type: Spontaneous
  Country: GR (occurrence: GR)
  Receive Date: 20240710
  Receipt Date: 20240710
  Transmission Date: 20241016
  Serious: Yes (Hospitalization, Other)
  Sender: NOVAST
  Company Number: GR-NOVAST LABORATORIES INC.-2024NOV000267

PATIENT
  Age: 40 Year
  Sex: Male

DRUGS (7)
  1. FLUOROURACIL [Suspect]
     Active Substance: FLUOROURACIL
     Indication: Product used for unknown indication
     Dosage: UNK
     Route: 057
  2. FLUOROURACIL [Suspect]
     Active Substance: FLUOROURACIL
     Dosage: 0.4 ML OF 50 MG/ML
     Route: 057
  3. BIMATOPROST [Concomitant]
     Active Substance: BIMATOPROST
     Indication: Product used for unknown indication
     Dosage: 0.3 MILLIGRAM PER MILLILITRE
     Route: 065
  4. TIMOLOL [Concomitant]
     Active Substance: TIMOLOL
     Indication: Product used for unknown indication
     Dosage: 5 MILLIGRAM PER MILLILITRE, AT NIGHT
  5. ACETAZOLAMIDE [Concomitant]
     Active Substance: ACETAZOLAMIDE
     Indication: Product used for unknown indication
     Dosage: 250 MILLIGRAM, BID
     Route: 065
  6. TETRACAINE [Concomitant]
     Active Substance: TETRACAINE
     Indication: Product used for unknown indication
     Dosage: 0.5 %
  7. DORZOLAMIDE [Concomitant]
     Active Substance: DORZOLAMIDE
     Indication: Product used for unknown indication
     Dosage: 2 %, BID

REACTIONS (3)
  - Corneal toxicity [Recovering/Resolving]
  - Anterior chamber inflammation [Recovering/Resolving]
  - Subretinal fluid [Recovered/Resolved]
